FAERS Safety Report 7428912-5 (Version None)
Quarter: 2011Q2

REPORT INFORMATION
  Report Type: 
  Country: None (occurrence: None)
  Receive Date: 20110421
  Receipt Date: 20110415
  Transmission Date: 20111010
  Serious: Yes (Hospitalization)
  Sender: FDA-Public Use
  Company Number: JP-SANOFI-AVENTIS-2011SA023733

PATIENT
  Sex: Male

DRUGS (9)
  1. SAWACILLIN [Concomitant]
     Route: 048
  2. AMARYL [Suspect]
     Indication: DIABETES MELLITUS
     Route: 048
  3. AMARYL [Suspect]
     Route: 048
     Dates: start: 20110401, end: 20110401
  4. CLARITH [Concomitant]
     Route: 048
  5. AMARYL [Suspect]
     Route: 048
     Dates: start: 20110401, end: 20110401
  6. GASTER [Concomitant]
     Route: 048
     Dates: end: 20110401
  7. CRAVIT [Concomitant]
  8. ARICEPT [Concomitant]
     Route: 048
  9. LIPITOR [Concomitant]
     Route: 048

REACTIONS (4)
  - ASPARTATE AMINOTRANSFERASE INCREASED [None]
  - ALANINE AMINOTRANSFERASE INCREASED [None]
  - FEELING ABNORMAL [None]
  - BLOOD BILIRUBIN INCREASED [None]
